FAERS Safety Report 23503842 (Version 1)
Quarter: 2024Q1

REPORT INFORMATION
  Report Type: Spontaneous
  Country: FR (occurrence: FR)
  Receive Date: 20240209
  Receipt Date: 20240209
  Transmission Date: 20240410
  Serious: Yes (Hospitalization)
  Sender: FDA-Public Use
  Company Number: None

PATIENT
  Age: 74 Year
  Sex: Female

DRUGS (1)
  1. CLOPIDOGREL [Suspect]
     Active Substance: CLOPIDOGREL BISULFATE
     Indication: Hypertensive heart disease
     Dosage: 1 PER DAY
     Route: 048
     Dates: end: 202309

REACTIONS (1)
  - Subarachnoid haemorrhage [Recovered/Resolved]

NARRATIVE: CASE EVENT DATE: 20230923
